FAERS Safety Report 4594157-X (Version None)
Quarter: 2005Q1

REPORT INFORMATION
  Report Type: 
  Country: None (occurrence: None)
  Receive Date: 20050222
  Receipt Date: 20000210
  Transmission Date: 20050727
  Serious: Yes (Other)
  Sender: FDA-Public Use
  Company Number: 2005-02-0401

PATIENT
  Age: 39 Year
  Sex: Female

DRUGS (3)
  1. CLARITIN [Suspect]
     Indication: URTICARIA
     Dosage: ORAL
     Route: 048
  2. STRONGER NEO MINOPHAGEN C [Concomitant]
  3. ATARAX [Concomitant]

REACTIONS (2)
  - PERIORBITAL OEDEMA [None]
  - TOXIC SKIN ERUPTION [None]
